FAERS Safety Report 8170576-X (Version None)
Quarter: 2012Q1

REPORT INFORMATION
  Report Type: 
  Country: None (occurrence: None)
  Receive Date: 20120228
  Receipt Date: 20120220
  Transmission Date: 20120608
  Serious: Yes (Other)
  Sender: FDA-Public Use
  Company Number: IT-SANOFI-AVENTIS-2011SA045299

PATIENT
  Age: 43 Year
  Sex: Female

DRUGS (4)
  1. PREFOLIC [Concomitant]
  2. BENEXOL [Concomitant]
  3. ENOXAPARIN SODIUM [Suspect]
     Route: 065
     Dates: start: 20100619, end: 20100619
  4. PROGESTERONE [Concomitant]

REACTIONS (3)
  - OFF LABEL USE [None]
  - UTERINE HAEMORRHAGE [None]
  - ABORTION [None]
